FAERS Safety Report 8543200-1 (Version None)
Quarter: 2012Q3

REPORT INFORMATION
  Report Type: 
  Country: None (occurrence: None)
  Receive Date: 20120727
  Receipt Date: 20120716
  Transmission Date: 20120928
  Serious: Yes (Other)
  Sender: FDA-Public Use
  Company Number: CH-MILLENNIUM PHARMACEUTICALS, INC.-2012-05051

PATIENT

DRUGS (4)
  1. VELCADE [Suspect]
     Indication: MULTIPLE MYELOMA
     Dosage: 1.5 MG, UNK
     Route: 065
     Dates: start: 20120217, end: 20120613
  2. DEXAMETHASONE [Concomitant]
     Indication: MULTIPLE MYELOMA
     Dosage: 8 MG, UNK
  3. BACTRIM [Concomitant]
  4. COVERSUM                           /00790701/ [Concomitant]

REACTIONS (3)
  - DEPRESSION [None]
  - DELIRIUM [None]
  - GENERAL PHYSICAL HEALTH DETERIORATION [None]
